FAERS Safety Report 9394170 (Version 2)
Quarter: 2013Q3

REPORT INFORMATION
  Report Type: Spontaneous
  Country: RU (occurrence: RU)
  Receive Date: 20130711
  Receipt Date: 20130712
  Transmission Date: 20140515
  Serious: Yes (Other)
  Sender: FDA-Public Use
  Company Number: PHHY2013RU073220

PATIENT
  Sex: Female

DRUGS (1)
  1. MIACALCIC NASAL [Suspect]
     Dosage: UNK UKN, UNK
     Route: 045
     Dates: start: 2010

REACTIONS (2)
  - Thyroid neoplasm [Unknown]
  - Thyroid cyst [Unknown]
